FAERS Safety Report 5126867-X (Version None)
Quarter: 2006Q4

REPORT INFORMATION
  Report Type: 
  Country: None (occurrence: None)
  Receive Date: 20061013
  Receipt Date: 20061002
  Transmission Date: 20070319
  Serious: Yes (Hospitalization)
  Sender: FDA-Public Use
  Company Number: GB-ROCHE-466511

PATIENT
  Age: 36 Year
  Sex: Female
  Weight: 71 kg

DRUGS (2)
  1. ORLISTAT [Suspect]
     Indication: OBESITY
     Route: 048
     Dates: start: 20060703
  2. LANSOPRAZOLE [Concomitant]
     Route: 048

REACTIONS (1)
  - APPENDICITIS [None]
